FAERS Safety Report 10530605 (Version 5)
Quarter: 2014Q4

REPORT INFORMATION
  Report Type: Report from Study
  Country: US (occurrence: US)
  Receive Date: 20141021
  Receipt Date: 20141125
  Transmission Date: 20150528
  Serious: Yes (Death, Hospitalization)
  Sender: FDA-Public Use
  Company Number: US-ACTELION-A-US2014-106176

PATIENT
  Age: 78 Year
  Sex: Female

DRUGS (3)
  1. TREPROSTINIL [Concomitant]
     Active Substance: TREPROSTINIL
     Dosage: UNK
     Dates: end: 20141009
  2. WARFARIN [Concomitant]
     Active Substance: WARFARIN
  3. MACITENTAN [Suspect]
     Active Substance: MACITENTAN
     Indication: PULMONARY ARTERIAL HYPERTENSION
     Dosage: 10 MG, QD
     Route: 048
     Dates: start: 20140123

REACTIONS (4)
  - Death [Fatal]
  - Cellulitis [Unknown]
  - Condition aggravated [Unknown]
  - Oedema [Unknown]

NARRATIVE: CASE EVENT DATE: 20140915
